FAERS Safety Report 13920525 (Version 1)
Quarter: 2017Q3

REPORT INFORMATION
  Report Type: Spontaneous
  Country: US (occurrence: None)
  Receive Date: 20170829
  Receipt Date: 20170829
  Transmission Date: 20171127
  Serious: Yes (Hospitalization)
  Sender: FDA-Public Use
  Company Number: None

PATIENT
  Age: 80 Year
  Sex: Male
  Weight: 92.8 kg

DRUGS (1)
  1. APIXABAN [Suspect]
     Active Substance: APIXABAN
     Indication: ATRIAL FIBRILLATION
     Route: 048
     Dates: start: 20161103

REACTIONS (5)
  - Anaemia [None]
  - Lower gastrointestinal haemorrhage [None]
  - Haemorrhoids [None]
  - Diverticulum intestinal haemorrhagic [None]
  - Gastric haemorrhage [None]

NARRATIVE: CASE EVENT DATE: 20170727
